FAERS Safety Report 18475316 (Version 1)
Quarter: 2020Q4

REPORT INFORMATION
  Report Type: Report from Study
  Country: US (occurrence: US)
  Receive Date: 20201106
  Receipt Date: 20201106
  Transmission Date: 20210114
  Serious: Yes (Hospitalization, Other)
  Sender: FDA-Public Use
  Company Number: US-SHIRE-US202022975

PATIENT
  Sex: Female

DRUGS (1)
  1. HUMAN NORMAL IMMUNOGLOBULIN; LIQUID [Suspect]
     Active Substance: HUMAN IMMUNOGLOBULIN G
     Indication: PRIMARY IMMUNODEFICIENCY SYNDROME
     Dosage: UNK
     Route: 042

REACTIONS (7)
  - Dizziness [Unknown]
  - Fatigue [Recovering/Resolving]
  - Illness [Unknown]
  - Vomiting [Unknown]
  - Brain neoplasm [Recovered/Resolved]
  - Inability to afford medication [Unknown]
  - Seizure [Unknown]
